FAERS Safety Report 18021890 (Version 1)
Quarter: 2020Q3

REPORT INFORMATION
  Report Type: Spontaneous
  Country: CN (occurrence: CN)
  Receive Date: 20200714
  Receipt Date: 20200714
  Transmission Date: 20201103
  Serious: Yes (Hospitalization, Other)
  Sender: FDA-Public Use
  Company Number: CN-PFIZER INC-2020266683

PATIENT
  Age: 40 Year
  Sex: Male
  Weight: 62 kg

DRUGS (2)
  1. METHOTREXATE. [Suspect]
     Active Substance: METHOTREXATE
     Indication: OSTEOSARCOMA
     Dosage: 14 G, 1X/DAY
     Route: 041
     Dates: start: 20200630, end: 20200630
  2. SODIUM CHLORIDE. [Concomitant]
     Active Substance: SODIUM CHLORIDE
     Indication: OSTEOSARCOMA
     Dosage: 700.000 ML, 1X/DAY
     Route: 041
     Dates: start: 20200630, end: 20200630

REACTIONS (4)
  - Dizziness [Recovering/Resolving]
  - Flushing [Recovering/Resolving]
  - Gastrointestinal disorder [Recovering/Resolving]
  - Hepatic function abnormal [Recovering/Resolving]

NARRATIVE: CASE EVENT DATE: 20200630
